FAERS Safety Report 6866722-8 (Version None)
Quarter: 2010Q2

REPORT INFORMATION
  Report Type: 
  Country: None (occurrence: None)
  Receive Date: 20100610
  Receipt Date: 20100223
  Transmission Date: 20101027
  Serious: No
  Sender: FDA-Public Use
  Company Number: 2010SP012564

PATIENT
  Age: 45 Year
  Sex: Female

DRUGS (3)
  1. SAPHRIS [Suspect]
     Indication: SCHIZOAFFECTIVE DISORDER
     Dosage: 5 MG;BID;
  2. RISPERDAL [Concomitant]
  3. ZOLOFT [Concomitant]

REACTIONS (3)
  - NAUSEA [None]
  - RASH [None]
  - VOMITING [None]
